FAERS Safety Report 11235005 (Version 1)
Quarter: 2015Q3

REPORT INFORMATION
  Report Type: Spontaneous
  Country: US (occurrence: US)
  Receive Date: 20150702
  Receipt Date: 20150702
  Transmission Date: 20151125
  Serious: No
  Sender: FDA-Public Use
  Company Number: US-PFIZER INC-2015213913

PATIENT
  Age: 73 Year
  Sex: Female

DRUGS (12)
  1. LISINOPRIL AND HYDROCHLOROTHIAZIDE [Concomitant]
     Active Substance: HYDROCHLOROTHIAZIDE\LISINOPRIL
     Dosage: UNK, 1X/DAY (LISINOPRIL-10MG, HCT-12.5MG)
  2. VITAMIN D3 [Concomitant]
     Active Substance: CHOLECALCIFEROL
     Dosage: 5000 IU, UNK
  3. SUTENT [Suspect]
     Active Substance: SUNITINIB MALATE
     Dosage: 25 MG, CYCLIC (EVERY OTHER DAY)
  4. EVISTA [Concomitant]
     Active Substance: RALOXIFENE HYDROCHLORIDE
     Dosage: 60 MG, 1X/DAY
  5. ZOLPIDEM TARTRATE. [Concomitant]
     Active Substance: ZOLPIDEM TARTRATE
     Dosage: 10 MG, AS NEEDED (1 AT BED TIME AS NEEDED)
  6. FENTANYL. [Concomitant]
     Active Substance: FENTANYL
     Dosage: 50 ?G, UNK (50MCG/HR PATCH)
     Dates: start: 20140306
  7. PAROXETINE HCL [Concomitant]
     Active Substance: PAROXETINE HYDROCHLORIDE
     Dosage: 20 MG, 1X/DAY
  8. MORPHINE SULFATE. [Concomitant]
     Active Substance: MORPHINE SULFATE
     Dosage: 0.25 ML, UNK (EVERY 2HR IF NEEDED)
     Dates: start: 20140306
  9. CARBIDOPA LEVODOPA [Concomitant]
     Active Substance: CARBIDOPA\LEVODOPA
     Dosage: UNK (CARBIDOPA-10MG, LEVO-100MG) 1 AT BED TIME
  10. OMEPRAZOLE. [Concomitant]
     Active Substance: OMEPRAZOLE
     Dosage: 40 MG, AS NEEDED (1 DAILY)
  11. CYCLOBENZAPRINE [Concomitant]
     Active Substance: CYCLOBENZAPRINE
     Dosage: 5 MG, 3X/DAY (1 TAB 3 TIMES DAILY) IF NEEDED
  12. SUTENT [Suspect]
     Active Substance: SUNITINIB MALATE
     Indication: METASTATIC RENAL CELL CARCINOMA
     Dosage: 12.5 MG, 1X/DAY

REACTIONS (1)
  - Diarrhoea [Unknown]
